FAERS Safety Report 16616798 (Version 1)
Quarter: 2019Q3

REPORT INFORMATION
  Report Type: Spontaneous
  Country: US (occurrence: US)
  Receive Date: 20190723
  Receipt Date: 20190723
  Transmission Date: 20191004
  Serious: No
  Sender: FDA-Public Use
  Company Number: US-FOUNDATIONCONSUMERHC-2019-US-011681

PATIENT
  Sex: Female

DRUGS (1)
  1. PLAN B ONE-STEP [Suspect]
     Active Substance: LEVONORGESTREL
     Indication: POST COITAL CONTRACEPTION
     Dates: start: 20190509, end: 20190509

REACTIONS (6)
  - Vaginal haemorrhage [Recovered/Resolved]
  - Vaginal discharge [Unknown]
  - Abdominal pain [Unknown]
  - Breast pain [Unknown]
  - Menstruation delayed [Not Recovered/Not Resolved]
  - Breast swelling [Unknown]

NARRATIVE: CASE EVENT DATE: 20190513
